FAERS Safety Report 21059454 (Version 1)
Quarter: 2022Q3

REPORT INFORMATION
  Report Type: Spontaneous
  Country: FR (occurrence: FR)
  Receive Date: 20220708
  Receipt Date: 20220708
  Transmission Date: 20221027
  Serious: Yes (Other)
  Sender: FDA-Public Use
  Company Number: None

PATIENT
  Age: 64 Year
  Sex: Female
  Weight: 62 kg

DRUGS (1)
  1. AZELASTINE [Suspect]
     Active Substance: AZELASTINE
     Indication: Eye irritation
     Dosage: 1 GTT DROPS
     Route: 065
     Dates: start: 202202, end: 20220613

REACTIONS (2)
  - Starvation [Not Recovered/Not Resolved]
  - Nausea [Not Recovered/Not Resolved]

NARRATIVE: CASE EVENT DATE: 20220301
